FAERS Safety Report 5217512-3 (Version None)
Quarter: 2007Q1

REPORT INFORMATION
  Report Type: 
  Country: None (occurrence: None)
  Receive Date: 20070124
  Receipt Date: 20060412
  Transmission Date: 20070707
  Serious: No
  Sender: FDA-Public Use
  Company Number: US-BRISTOL-MYERS SQUIBB COMPANY-13344775

PATIENT
  Age: 70 Year
  Sex: Female
  Weight: 45 kg

DRUGS (2)
  1. SERZONE [Suspect]
     Indication: INSOMNIA
     Dates: start: 19960101, end: 20040101
  2. DYAZIDE [Concomitant]

REACTIONS (1)
  - LIVER FUNCTION TEST ABNORMAL [None]
